FAERS Safety Report 18090561 (Version 3)
Quarter: 2020Q4

REPORT INFORMATION
  Report Type: Other
  Country: GB (occurrence: GB)
  Receive Date: 20200730
  Receipt Date: 20201002
  Transmission Date: 20210113
  Serious: Yes (Other)
  Sender: FDA-Public Use
  Company Number: GB-ROCHE-2176581

PATIENT
  Age: 58 Year
  Sex: Female

DRUGS (22)
  1. DIFFLAM MOUTH [Concomitant]
     Route: 061
     Dates: start: 20151113, end: 2015
  2. DEXAMETHASONE. [Concomitant]
     Active Substance: DEXAMETHASONE
     Dosage: OTHER
     Route: 048
     Dates: start: 20160602, end: 20170524
  3. ADCAL-D3 [Concomitant]
     Active Substance: CALCIUM CARBONATE\CHOLECALCIFEROL
     Indication: METASTASES TO BONE
     Route: 048
     Dates: start: 20151113, end: 2017
  4. CALCICHEW D3 FORTE [Concomitant]
     Active Substance: CALCIUM\CHOLECALCIFEROL
     Route: 048
     Dates: start: 20160721, end: 20160804
  5. TRASTUZUMAB. [Suspect]
     Active Substance: TRASTUZUMAB
     Route: 058
     Dates: start: 20160524, end: 20160526
  6. METOCLOPRAMIDE. [Concomitant]
     Active Substance: METOCLOPRAMIDE
     Route: 048
     Dates: end: 20170831
  7. DENOSUMAB [Concomitant]
     Active Substance: DENOSUMAB
     Dosage: OTHERS
     Route: 058
     Dates: start: 20151019, end: 20170831
  8. DENOSUMAB [Concomitant]
     Active Substance: DENOSUMAB
     Indication: METASTASES TO BONE
     Dosage: OTHERS
     Route: 058
     Dates: start: 201510, end: 20170105
  9. BENZYDAMINE [Concomitant]
     Active Substance: BENZYDAMINE
     Dates: start: 20160602, end: 20160609
  10. VINORELBINE [Suspect]
     Active Substance: VINORELBINE TARTRATE
     Indication: BREAST CANCER
     Dosage: OTHERS
     Route: 048
     Dates: start: 20160324, end: 20160512
  11. OMEPRAZOLE. [Concomitant]
     Active Substance: OMEPRAZOLE
     Dosage: EVERY OTHER DAY
     Route: 048
     Dates: start: 20151229, end: 20170831
  12. THYROXINE [Concomitant]
     Active Substance: LEVOTHYROXINE
     Route: 048
     Dates: start: 1995, end: 20170831
  13. ENZALUTAMIDE [Suspect]
     Active Substance: ENZALUTAMIDE
     Indication: BREAST CANCER
     Route: 048
     Dates: start: 20151113, end: 20160226
  14. ERIBULIN MESYLATE [Suspect]
     Active Substance: ERIBULIN MESYLATE
     Indication: BREAST CANCER
     Route: 042
     Dates: start: 20160602, end: 20170316
  15. AMITRIPTYLINE [Concomitant]
     Active Substance: AMITRIPTYLINE
     Dosage: OTHER
     Route: 048
     Dates: start: 201504, end: 2015
  16. TRASTUZUMAB. [Suspect]
     Active Substance: TRASTUZUMAB
     Indication: BREAST CANCER
     Route: 058
     Dates: start: 20151113, end: 20160225
  17. COCODAMOL [Concomitant]
     Active Substance: ACETAMINOPHEN\CODEINE PHOSPHATE
     Dosage: 530 TABLET
     Route: 048
     Dates: start: 201504, end: 20170831
  18. CETIRIZINE HYDROCHLORIDE. [Concomitant]
     Active Substance: CETIRIZINE HYDROCHLORIDE
     Route: 048
     Dates: start: 20160602, end: 20160630
  19. ORAMORPH [Concomitant]
     Active Substance: MORPHINE SULFATE
     Dosage: AS NEEDED
     Route: 048
     Dates: start: 20150920, end: 20170831
  20. TRASTUZUMAB EMTANSINE [Suspect]
     Active Substance: ADO-TRASTUZUMAB EMTANSINE
     Indication: BREAST CANCER
     Route: 042
     Dates: start: 20150508, end: 20150911
  21. CALCICHEW [Concomitant]
     Active Substance: CALCIUM CARBONATE
     Route: 048
     Dates: start: 20151020, end: 20170831
  22. VITAMIN D3 [Concomitant]
     Active Substance: CHOLECALCIFEROL
     Route: 048
     Dates: start: 20151019, end: 201611

REACTIONS (2)
  - Muscle spasms [Recovered/Resolved]
  - Pulmonary embolism [Recovered/Resolved]

NARRATIVE: CASE EVENT DATE: 2016
